FAERS Safety Report 9714006 (Version 1)
Quarter: 2013Q4

REPORT INFORMATION
  Report Type: Spontaneous
  Country: US (occurrence: US)
  Receive Date: 20131126
  Receipt Date: 20131126
  Transmission Date: 20140711
  Serious: No
  Sender: FDA-Public Use
  Company Number: US-GILEAD-2008-0018502

PATIENT
  Sex: Female
  Weight: 108.86 kg

DRUGS (16)
  1. LETAIRIS [Suspect]
     Indication: PULMONARY ARTERIAL HYPERTENSION
     Route: 048
     Dates: start: 20080920
  2. SILVADENE [Suspect]
  3. LANTUS [Concomitant]
  4. PROPRANOLOL [Concomitant]
  5. DARVOCET [Concomitant]
  6. ADVAIR [Concomitant]
  7. NITROGLYCERIN [Concomitant]
  8. LEVOXYL [Concomitant]
  9. BENGAY [Concomitant]
  10. SIMVASTATIN [Concomitant]
  11. BUMETADINE [Concomitant]
  12. ACTOS [Concomitant]
  13. PLAVIX [Concomitant]
  14. TYLENOL [Concomitant]
  15. BYETTA [Concomitant]
  16. OMEPRAZOLE [Concomitant]

REACTIONS (3)
  - Blister [None]
  - Pruritus [None]
  - Rash [None]
